FAERS Safety Report 9224354 (Version 1)
Quarter: 2013Q2

REPORT INFORMATION
  Report Type: Spontaneous
  Country: BR (occurrence: BR)
  Receive Date: 20130411
  Receipt Date: 20130411
  Transmission Date: 20140414
  Serious: Yes (Death)
  Sender: FDA-Public Use
  Company Number: PHHY2013BR034992

PATIENT
  Sex: Female

DRUGS (1)
  1. EXELON [Suspect]
     Dosage: 1 DF IN MORNING AND 1 DF AT NIGHT
     Route: 048

REACTIONS (2)
  - Aggression [Fatal]
  - Anger [Fatal]
